FAERS Safety Report 4696895-7 (Version None)
Quarter: 2005Q2

REPORT INFORMATION
  Report Type: 
  Country: None (occurrence: None)
  Receive Date: 20050620
  Receipt Date: 20050412
  Transmission Date: 20051028
  Serious: No
  Sender: FDA-Public Use
  Company Number: US-YAMANOUCHI-YPA20050191

PATIENT
  Age: 81 Year
  Sex: Female
  Weight: 53.5244 kg

DRUGS (6)
  1. VESICARE [Suspect]
     Indication: POLLAKIURIA
     Dosage: 5 MG QD PO
     Route: 048
     Dates: start: 20050314, end: 20050407
  2. VESICARE [Suspect]
     Indication: POLLAKIURIA
     Dosage: 10 MG QD PO
     Route: 048
     Dates: start: 20050408, end: 20050411
  3. NEXIUM [Concomitant]
  4. EVISTA [Concomitant]
  5. AMITRIPTYLINE [Concomitant]
  6. VITAMINS [Concomitant]

REACTIONS (2)
  - DIZZINESS [None]
  - DRUG INEFFECTIVE [None]
